FAERS Safety Report 6511782-7 (Version None)
Quarter: 2009Q4

REPORT INFORMATION
  Report Type: 
  Country: None (occurrence: None)
  Receive Date: 20091222
  Receipt Date: 20090407
  Transmission Date: 20100525
  Serious: No
  Sender: FDA-Public Use
  Company Number: US-ASTRAZENECA-2009UW08793

PATIENT
  Age: 56 Year
  Sex: Female
  Weight: 57.2 kg

DRUGS (2)
  1. CRESTOR [Suspect]
     Indication: BLOOD CHOLESTEROL INCREASED
     Route: 048
     Dates: start: 20081001, end: 20090301
  2. AVAPRO [Concomitant]

REACTIONS (2)
  - DYSPEPSIA [None]
  - PARAESTHESIA [None]
